FAERS Safety Report 5636998-3 (Version None)
Quarter: 2008Q1

REPORT INFORMATION
  Report Type: 
  Country: None (occurrence: None)
  Receive Date: 20080225
  Receipt Date: 20070424
  Transmission Date: 20080703
  Serious: No
  Sender: FDA-Public Use
  Company Number: US-BRISTOL-MYERS SQUIBB COMPANY-13758404

PATIENT
  Sex: Female
  Weight: 45 kg

DRUGS (4)
  1. GLUCOPHAGE [Suspect]
     Route: 048
     Dates: start: 20070201
  2. ACCUPRIL [Concomitant]
  3. DYAZIDE [Concomitant]
  4. FOLIC ACID [Concomitant]

REACTIONS (2)
  - NAIL DISCOLOURATION [None]
  - NAIL DISORDER [None]
